FAERS Safety Report 7472253-7 (Version None)
Quarter: 2011Q1

REPORT INFORMATION
  Report Type: 
  Country: None (occurrence: None)
  Receive Date: 20110302
  Receipt Date: 20100910
  Transmission Date: 20110831
  Serious: Yes (Death)
  Sender: FDA-Public Use
  Company Number: 163-21880-10081166

PATIENT
  Age: 32 Year
  Sex: Male
  Weight: 58.7 kg

DRUGS (8)
  1. REVLIMID [Suspect]
     Indication: REFRACTORY ANAEMIA
     Dosage: 10 MG, 1 IN 1 D, PO
     Route: 048
     Dates: start: 20100518
  2. DDAVP [Concomitant]
  3. SYNTHROID [Concomitant]
  4. CASPOFUNGIN (CASPOFUNGIN) [Concomitant]
  5. FOSAMAX [Concomitant]
  6. TESTOSTERONE [Concomitant]
  7. HYDROCORTONE [Concomitant]
  8. POTASSIUM (POTASSIUM) [Concomitant]

REACTIONS (2)
  - DISEASE PROGRESSION [None]
  - BRAIN NEOPLASM [None]
